FAERS Safety Report 5235208-9 (Version None)
Quarter: 2007Q1

REPORT INFORMATION
  Report Type: 
  Country: None (occurrence: None)
  Receive Date: 20070209
  Receipt Date: 20070209
  Transmission Date: 20070707
  Serious: Yes (Hospitalization)
  Sender: FDA-Public Use
  Company Number: None

PATIENT

DRUGS (2)
  1. SULFAMETHOXAZOLE, TRIMETHORPRIM D.S. [Suspect]
     Dosage: TABLET
  2. CARISOPRODOL [Suspect]
     Dosage: TABLET

REACTIONS (11)
  - AUTOIMMUNE DISORDER [None]
  - BLOOD BLISTER [None]
  - CONTUSION [None]
  - DOCUMENTED HYPERSENSITIVITY TO ADMINISTERED DRUG [None]
  - DRUG DISPENSING ERROR [None]
  - DRUG WITHDRAWAL SYNDROME [None]
  - MALAISE [None]
  - MEDICATION ERROR [None]
  - MOUTH HAEMORRHAGE [None]
  - OEDEMA PERIPHERAL [None]
  - PLATELET COUNT DECREASED [None]
